FAERS Safety Report 8600489 (Version 2)
Quarter: 2012Q4

REPORT INFORMATION
  Report Type: 
  Country: US (occurrence: US)
  Receive Date: 20120606
  Receipt Date: 20120912
  Transmission Date: 20130627
  Serious: No
  Sender: FDA-Public Use
  Company Number: US-PFIZER INC-2012133827

PATIENT
  Sex: Male

DRUGS (2)
  1. VIAGRA [Suspect]
     Dosage: 50 mg, UNK
  2. VIAGRA [Suspect]
     Dosage: 100 mg, UNK

REACTIONS (1)
  - Drug ineffective [Unknown]
